FAERS Safety Report 21998652 (Version 3)
Quarter: 2023Q1

REPORT INFORMATION
  Report Type: Other
  Country: DE (occurrence: DE)
  Receive Date: 20230216
  Receipt Date: 20230328
  Transmission Date: 20230417
  Serious: Yes (Hospitalization, Other)
  Sender: FDA-Public Use
  Company Number: None

PATIENT
  Age: 4 Year
  Sex: Female
  Weight: 22 kg

DRUGS (15)
  1. COLCHICINE [Suspect]
     Active Substance: COLCHICINE
     Indication: Familial cold autoinflammatory syndrome
     Dosage: 1 MILLIGRAM, QD; (1 MG, QD)
     Route: 048
     Dates: start: 20180412
  2. COLCHICINE [Suspect]
     Active Substance: COLCHICINE
     Indication: Cryopyrin associated periodic syndrome
     Dosage: UNK
     Route: 048
     Dates: start: 20180613
  3. COLCHICINE [Suspect]
     Active Substance: COLCHICINE
     Dosage: 1.5 MILLIGRAM PER DAY (0.75 MG, BID (MORNING AND EVENING)
     Route: 048
     Dates: start: 20220715
  4. COLCHICINE [Suspect]
     Active Substance: COLCHICINE
     Dosage: 1.5 MILLIGRAM PER DAY; (0.75 MG, BID)
     Route: 048
  5. COLCHICINE [Suspect]
     Active Substance: COLCHICINE
     Dosage: 1 MILLIGRAM, QD, (0.5 MG, BID, 2 X DAILY 0.5 MG)
     Route: 048
  6. COLCHICINE [Suspect]
     Active Substance: COLCHICINE
     Dosage: 1500 MILLIGRAM QD; (750 MG, BID)
     Route: 048
  7. COLCHICINE [Suspect]
     Active Substance: COLCHICINE
     Dosage: 1.5 MILLIGRAM QD; (1.5 MG, QD)
     Route: 065
  8. COLCHICINE [Suspect]
     Active Substance: COLCHICINE
     Dosage: UNK
     Route: 048
     Dates: start: 20220713
  9. COLCHICINE [Suspect]
     Active Substance: COLCHICINE
     Dosage: UNK
     Route: 048
     Dates: start: 20220711, end: 20220715
  10. ILARIS [Suspect]
     Active Substance: CANAKINUMAB
     Indication: Cryopyrin associated periodic syndrome
     Dosage: 36 MILLIGRAM, ONCE A MONTH; (36 MG, QMO)
     Route: 058
     Dates: start: 20200121
  11. ILARIS [Suspect]
     Active Substance: CANAKINUMAB
     Dosage: 90 MILLIGRAM
     Route: 058
     Dates: end: 20220521
  12. ILARIS [Suspect]
     Active Substance: CANAKINUMAB
     Dosage: 90 MILLIGRAM
     Route: 058
     Dates: end: 20220905
  13. ILARIS [Suspect]
     Active Substance: CANAKINUMAB
     Dosage: UNK
     Route: 065
     Dates: start: 20220615
  14. ILARIS [Suspect]
     Active Substance: CANAKINUMAB
     Dosage: 90 MILLIGRAM
     Route: 058
     Dates: start: 20221003
  15. ILARIS [Suspect]
     Active Substance: CANAKINUMAB
     Dosage: 90 MILLIGRAM
     Route: 058
     Dates: start: 20200121

REACTIONS (14)
  - Dehydration [Recovered/Resolved]
  - Cryopyrin associated periodic syndrome [Recovered/Resolved]
  - Condition aggravated [Recovered/Resolved]
  - Lymphadenopathy [Recovered/Resolved]
  - Fatigue [Recovered/Resolved]
  - Pyrexia [Recovered/Resolved]
  - Gastroenteritis [Recovered/Resolved]
  - Erythema [Recovered/Resolved]
  - Diarrhoea [Recovered/Resolved]
  - Asymptomatic COVID-19 [Recovered/Resolved]
  - Coronavirus infection [Recovered/Resolved]
  - Otitis media [Recovered/Resolved]
  - Otitis media [Recovered/Resolved]
  - Off label use [Unknown]

NARRATIVE: CASE EVENT DATE: 20201117
